FAERS Safety Report 6423980-1 (Version None)
Quarter: 2009Q4

REPORT INFORMATION
  Report Type: 
  Country: None (occurrence: None)
  Receive Date: 20091102
  Receipt Date: 20091028
  Transmission Date: 20100525
  Serious: Yes (Life-Threatening, Hospitalization)
  Sender: FDA-Public Use
  Company Number: JP-BRISTOL-MYERS SQUIBB COMPANY-14755318

PATIENT
  Age: 74 Year
  Sex: Female
  Weight: 46 kg

DRUGS (3)
  1. ERBITUX [Suspect]
     Indication: RECTAL CANCER
     Dosage: 500 MG 07APR09-07APR09;300 MG FROM 21APR09; ON 19MAY09 MOST RECENT (V INFUSION); RESUMED ON 03JUN09
     Route: 042
     Dates: start: 20090407, end: 20091013
  2. IRINOTECAN HCL [Suspect]
     Indication: RECTAL CANCER
     Dosage: 200 MG 07APR09; 160 MG 28APR-19MAY09 (21 DAYS)
     Route: 042
     Dates: start: 20090407, end: 20090519
  3. DECADRON [Concomitant]
     Indication: PREMEDICATION
     Route: 042
     Dates: start: 20090407

REACTIONS (7)
  - DECREASED APPETITE [None]
  - DIARRHOEA [None]
  - DISSEMINATED INTRAVASCULAR COAGULATION [None]
  - HEPATIC FUNCTION ABNORMAL [None]
  - NAUSEA [None]
  - NEUTROPHIL COUNT DECREASED [None]
  - PLATELET COUNT DECREASED [None]
